FAERS Safety Report 6439393-2 (Version None)
Quarter: 2009Q4

REPORT INFORMATION
  Report Type: 
  Country: None (occurrence: None)
  Receive Date: 20091113
  Receipt Date: 20091102
  Transmission Date: 20100525
  Serious: Yes (Death, Hospitalization, Other)
  Sender: FDA-Public Use
  Company Number: US-ELI_LILLY_AND_COMPANY-US200910003627

PATIENT
  Age: 72 Year
  Sex: Male
  Weight: 92.063 kg

DRUGS (8)
  1. EFFIENT [Suspect]
     Indication: MYOCARDIAL INFARCTION
     Dosage: 10 MG, DAILY (1/D)
     Route: 048
     Dates: start: 20090915
  2. PLAVIX [Concomitant]
     Dosage: UNK, UNK
  3. BABY ASPIRIN [Concomitant]
     Dosage: 81 MG, UNK
  4. METOPROLOL SUCCINATE [Concomitant]
     Dosage: 50 MG, DAILY (1/D)
     Route: 048
  5. LANOXIN [Concomitant]
     Dosage: 0.125 MG, DAILY (1/D)
     Route: 048
  6. K-DUR [Concomitant]
     Dosage: 40 MEQ, UNK
     Route: 048
  7. BENAZEPRIL HYDROCHLORIDE [Concomitant]
     Dosage: 5 MG, DAILY (1/D)
     Route: 048
  8. ASPIRIN [Concomitant]
     Dosage: 325 MG, DAILY (1/D)
     Route: 048

REACTIONS (4)
  - LEFT VENTRICULAR DYSFUNCTION [None]
  - MYOCARDIAL INFARCTION [None]
  - VENTRICULAR FIBRILLATION [None]
  - VENTRICULAR TACHYCARDIA [None]
